FAERS Safety Report 11214572 (Version 1)
Quarter: 2015Q2

REPORT INFORMATION
  Report Type: Spontaneous
  Country: US (occurrence: None)
  Receive Date: 20150622
  Receipt Date: 20150622
  Transmission Date: 20150821
  Serious: Yes (Hospitalization)
  Sender: FDA-Public Use
  Company Number: US-2015EGA000042

PATIENT
  Age: 68 Year
  Sex: Female

DRUGS (13)
  1. LOSARTAN + HYDROCHLOROTHIAZIDA (HYDROCHLOROTHIAZIDE, LOSARTAN) [Concomitant]
  2. CHOLECALCIFEROL [Concomitant]
     Active Substance: CHOLECALCIFEROL
  3. OMEPRAZOLE. [Concomitant]
     Active Substance: OMEPRAZOLE
  4. ONDANSETRON [Concomitant]
     Active Substance: ONDANSETRON
  5. FENTANYL. [Suspect]
     Active Substance: FENTANYL
     Indication: PAIN
     Dosage: 50 UG, HOUR TRANSDERMAL
     Route: 062
  6. OXYCODONE HYDROCHLORIDE. [Suspect]
     Active Substance: OXYCODONE HYDROCHLORIDE
     Indication: PAIN
     Dosage: Q6H, PRN
     Route: 048
  7. ASPIRIN (ACETYLSALICYLIC ACID) [Concomitant]
     Active Substance: ASPIRIN
  8. GABAPENTIN. [Concomitant]
     Active Substance: GABAPENTIN
  9. LEVOTHYROXINE [Concomitant]
     Active Substance: LEVOTHYROXINE
  10. SUTENT [Suspect]
     Active Substance: SUNITINIB MALATE
     Indication: PRODUCT USED FOR UNKNOWN INDICATION
     Route: 048
  11. ATENOLOL (ATENOLOL) [Concomitant]
     Active Substance: ATENOLOL
  12. ALBUTEROL (SALBUTAMOL) [Concomitant]
     Active Substance: ALBUTEROL
  13. MEGACE [Concomitant]
     Active Substance: MEGESTROL ACETATE

REACTIONS (2)
  - Vomiting [None]
  - Nausea [None]
